FAERS Safety Report 7736159-8 (Version None)
Quarter: 2011Q3

REPORT INFORMATION
  Report Type: 
  Country: None (occurrence: None)
  Receive Date: 20110902
  Receipt Date: 20110819
  Transmission Date: 20111222
  Serious: Yes (Other)
  Sender: FDA-Public Use
  Company Number: 1000022411

PATIENT
  Age: 39 Year
  Sex: Male

DRUGS (2)
  1. SEROQUEL XR [Suspect]
     Dosage: 300 MG (300 MG, 1 IN 1 D),ORAL
     Route: 048
     Dates: start: 20090630, end: 20100823
  2. ESCITALOPRAM [Suspect]
     Indication: DEPRESSION
     Dosage: 10 MG (10 MG, 1 IN 1 D),ORAL
     Route: 048
     Dates: start: 20090630

REACTIONS (4)
  - LEUKOPENIA [None]
  - NEUTROPENIA [None]
  - LYMPHOCYTE PERCENTAGE INCREASED [None]
  - EOSINOPHIL COUNT INCREASED [None]
